FAERS Safety Report 4990368-X (Version None)
Quarter: 2006Q2

REPORT INFORMATION
  Report Type: 
  Country: None (occurrence: None)
  Receive Date: 20060503
  Receipt Date: 20060309
  Transmission Date: 20061013
  Serious: Yes (Other)
  Sender: FDA-Public Use
  Company Number: NZ-GLAXOSMITHKLINE-B0415262A

PATIENT
  Sex: Female

DRUGS (4)
  1. MACLEANS PROTECT, MILDMINT [Suspect]
     Indication: DENTAL CLEANING
     Dates: start: 20060307, end: 20060309
  2. VENTOLIN [Concomitant]
     Indication: ASTHMA
  3. TRAMADOL HCL [Concomitant]
     Indication: COMPLEX REGIONAL PAIN SYNDROME
  4. NORTRIPTYLINE HCL [Concomitant]
     Indication: COMPLEX REGIONAL PAIN SYNDROME

REACTIONS (3)
  - ASTHMA [None]
  - NASOPHARYNGITIS [None]
  - SINUS DISORDER [None]
